FAERS Safety Report 8065732-5 (Version None)
Quarter: 2012Q1

REPORT INFORMATION
  Report Type: 
  Country: None (occurrence: None)
  Receive Date: 20120124
  Receipt Date: 20120113
  Transmission Date: 20120608
  Serious: Yes (Hospitalization)
  Sender: FDA-Public Use
  Company Number: JP-AMGEN-JPNCT2011045917

PATIENT
  Age: 36 Year
  Sex: Female
  Weight: 45 kg

DRUGS (11)
  1. FLUOROURACIL [Suspect]
     Dosage: 2400 MG/M2, Q2WK
     Route: 041
     Dates: end: 20110804
  2. PANITUMUMAB [Suspect]
     Indication: COLORECTAL CANCER
     Dosage: 6 MG/KG, Q2WK
     Route: 041
     Dates: start: 20110804, end: 20110804
  3. ALOXI [Concomitant]
     Dosage: 0.75 MG, UNK
     Route: 042
  4. DECADRON [Concomitant]
     Dosage: 6.6 MG, UNK
     Route: 042
  5. PANITUMUMAB [Suspect]
     Dosage: 5 MG/KG, Q2WK
     Route: 041
     Dates: start: 20110823
  6. FLUOROURACIL [Suspect]
     Dosage: 320 MG/M2, Q2WK
     Route: 040
     Dates: start: 20110823
  7. OXALIPLATIN [Suspect]
     Indication: COLORECTAL CANCER
     Dosage: 85 MG/M2, Q2WK
     Route: 041
     Dates: end: 20110804
  8. OXALIPLATIN [Suspect]
     Dosage: 68 MG/M2, Q2WK
     Route: 041
     Dates: start: 20110823
  9. FLUOROURACIL [Suspect]
     Dosage: 1920 MG/M2, Q2WK
     Route: 041
     Dates: start: 20110823
  10. FLUOROURACIL [Suspect]
     Indication: COLORECTAL CANCER
     Dosage: 400 MG/M2, Q2WK
     Route: 040
     Dates: end: 20110804
  11. ISOVORIN [Concomitant]
     Indication: COLORECTAL CANCER
     Dosage: 200 MG/M2, Q2WK
     Route: 041

REACTIONS (2)
  - NEUTROPHIL COUNT DECREASED [None]
  - PLATELET COUNT DECREASED [None]
